FAERS Safety Report 5912333-8 (Version None)
Quarter: 2008Q4

REPORT INFORMATION
  Report Type: 
  Country: None (occurrence: None)
  Receive Date: 20081008
  Receipt Date: 20081003
  Transmission Date: 20090506
  Serious: Yes (Hospitalization)
  Sender: FDA-Public Use
  Company Number: AU-MERCK-0712AUS00365

PATIENT
  Age: 78 Year
  Sex: Female
  Weight: 55 kg

DRUGS (8)
  1. FOSAMAX [Suspect]
     Indication: OSTEOPOROSIS
     Route: 048
     Dates: start: 20060801, end: 20070101
  2. FOSAMAX [Suspect]
     Route: 048
     Dates: start: 20070101
  3. VERAPAMIL HYDROCHLORIDE [Suspect]
     Indication: HYPERTENSION
     Route: 065
     Dates: end: 20071201
  4. IRBESARTAN [Suspect]
     Indication: HYPERTENSION
     Route: 065
  5. IRBESARTAN [Suspect]
     Route: 065
  6. ASPIRIN [Concomitant]
     Route: 065
  7. ZOCOR [Suspect]
     Indication: LIPIDS INCREASED
     Route: 048
  8. ESOMEPRAZOLE MAGNESIUM [Suspect]
     Indication: GASTROOESOPHAGEAL REFLUX DISEASE
     Route: 065

REACTIONS (3)
  - CONSTIPATION [None]
  - FALL [None]
  - INTESTINAL OBSTRUCTION [None]
